FAERS Safety Report 15133817 (Version 4)
Quarter: 2018Q3

REPORT INFORMATION
  Report Type: Spontaneous
  Country: US (occurrence: US)
  Receive Date: 20180712
  Receipt Date: 20180914
  Transmission Date: 20181010
  Serious: Yes (Hospitalization, Other)
  Sender: FDA-Public Use
  Company Number: US-VERTEX PHARMACEUTICALS-2018-004792

PATIENT
  Age: 32 Year
  Sex: Female

DRUGS (6)
  1. GABAPENTIN. [Concomitant]
     Active Substance: GABAPENTIN
  2. PULMOZYME [Concomitant]
     Active Substance: DORNASE ALFA
  3. VENTOLIN [Concomitant]
     Active Substance: ALBUTEROL SULFATE
  4. METHOCARBAMOL. [Concomitant]
     Active Substance: METHOCARBAMOL
  5. DICLOFENAC [Concomitant]
     Active Substance: DICLOFENAC
  6. ORKAMBI [Suspect]
     Active Substance: IVACAFTOR\LUMACAFTOR
     Indication: CYSTIC FIBROSIS
     Dosage: 2 DOSAGE FORM (200/125 MG EACH), BID
     Route: 048
     Dates: start: 20180512

REACTIONS (5)
  - Diarrhoea [Recovered/Resolved]
  - Bronchial secretion retention [Unknown]
  - Pneumothorax [Unknown]
  - Infection [Unknown]
  - Malaise [Unknown]

NARRATIVE: CASE EVENT DATE: 2018
